FAERS Safety Report 11622022 (Version 1)
Quarter: 2015Q4

REPORT INFORMATION
  Report Type: Spontaneous
  Country: US (occurrence: US)
  Receive Date: 20151013
  Receipt Date: 20151013
  Transmission Date: 20160304
  Serious: No
  Sender: FDA-Public Use
  Company Number: US-JNJFOC-20150202436

PATIENT
  Age: 75 Year
  Sex: Male
  Weight: 88.45 kg

DRUGS (5)
  1. TYLENOL EXTRA STRENGTH [Suspect]
     Active Substance: ACETAMINOPHEN
     Indication: UPPER LIMB FRACTURE
     Route: 048
     Dates: start: 20150126
  2. AVODART [Concomitant]
     Active Substance: DUTASTERIDE
     Indication: PROSTATOMEGALY
     Route: 065
  3. LISINOPRIL. [Concomitant]
     Active Substance: LISINOPRIL
     Indication: BLOOD CHOLESTEROL INCREASED
     Route: 065
  4. METOPROLOL [Concomitant]
     Active Substance: METOPROLOL
     Indication: HYPERTENSION
     Route: 065
  5. AMITRIPTYLINE [Concomitant]
     Active Substance: AMITRIPTYLINE
     Indication: HYPERTONIC BLADDER
     Route: 065

REACTIONS (2)
  - Dizziness [Not Recovered/Not Resolved]
  - Product use issue [Unknown]

NARRATIVE: CASE EVENT DATE: 20150126
